FAERS Safety Report 21962522 (Version 1)
Quarter: 2023Q1

REPORT INFORMATION
  Report Type: Spontaneous
  Country: US (occurrence: None)
  Receive Date: 20230206
  Receipt Date: 20230206
  Transmission Date: 20230418
  Serious: Yes (Hospitalization)
  Sender: FDA-Public Use
  Company Number: None

PATIENT
  Sex: Female

DRUGS (40)
  1. TOBRAMYCIN [Suspect]
     Active Substance: TOBRAMYCIN
     Indication: Asthma
     Dosage: OTHER QUANTITY : 300MG/5ML;?FREQUENCY : AS DIRECTED;?
     Route: 055
     Dates: start: 20220517
  2. TOBRAMYCIN [Suspect]
     Active Substance: TOBRAMYCIN
     Dosage: FREQUENCY : AS DIRECTED;?
     Route: 055
  3. ACETYLCYST SOL [Concomitant]
  4. ALBUTEROL [Concomitant]
  5. ALTERA [Concomitant]
  6. APAP/CODEINE [Concomitant]
  7. AZELASTINE [Concomitant]
     Active Substance: AZELASTINE
  8. AZITHROMYCIN [Concomitant]
     Active Substance: AZITHROMYCIN
  9. BENZONATATE [Concomitant]
     Active Substance: BENZONATATE
  10. BOOST PLUS CHOCOLATE [Concomitant]
  11. BROVANA NEB [Concomitant]
  12. BUDESONIDE [Concomitant]
     Active Substance: BUDESONIDE
  13. CATHFLO ACTI [Concomitant]
  14. CAYSTON [Concomitant]
     Active Substance: AZTREONAM
  15. CETIRIZINE [Concomitant]
     Active Substance: CETIRIZINE HYDROCHLORIDE
  16. COMPLETE FORM D500 SOFTGEL [Concomitant]
  17. CREON [Concomitant]
     Active Substance: PANCRELIPASE AMYLASE\PANCRELIPASE LIPASE\PANCRELIPASE PROTEASE
  18. DEEP SEA SPR [Concomitant]
  19. DIPHENHYDRAM [Concomitant]
  20. DUPIXENT [Concomitant]
     Active Substance: DUPILUMAB
  21. ERYTHROMYCIN [Concomitant]
  22. ESOMEPRAZOLE [Concomitant]
     Active Substance: ESOMEPRAZOLE
  23. FASENRA [Concomitant]
     Active Substance: BENRALIZUMAB
  24. FEXOFENADINE [Concomitant]
     Active Substance: FEXOFENADINE HYDROCHLORIDE
  25. FLUTICASONE [Concomitant]
     Active Substance: FLUTICASONE
  26. FOLIC ACID [Concomitant]
     Active Substance: FOLIC ACID
  27. GLUCAGON [Concomitant]
     Active Substance: GLUCAGON
  28. HYDROXYCHLOROQUINE [Concomitant]
     Active Substance: HYDROXYCHLOROQUINE
  29. IBUPROFEN [Concomitant]
     Active Substance: IBUPROFEN
  30. IPRATROPIUM/SOL ALBUTER [Concomitant]
  31. METOCLOPRAM [Concomitant]
  32. MONTELUKAST [Concomitant]
     Active Substance: MONTELUKAST SODIUM
  33. NAPROXEN [Concomitant]
     Active Substance: NAPROXEN
  34. NORTRIPTYLIN [Concomitant]
  35. ONDANSETRON [Concomitant]
  36. OYSTER SHELL [Concomitant]
     Active Substance: OSTREA EDULIS SHELL
  37. POLYETH GLYC PW [Concomitant]
  38. PREDNISONE [Concomitant]
     Active Substance: PREDNISONE
  39. PROMETHAZINE [Concomitant]
     Active Substance: PROMETHAZINE HYDROCHLORIDE
  40. PULMOZYME [Concomitant]
     Active Substance: DORNASE ALFA

REACTIONS (1)
  - Hospitalisation [None]
